FAERS Safety Report 20432575 (Version 1)
Quarter: 2022Q1

REPORT INFORMATION
  Report Type: Spontaneous
  Country: CA (occurrence: CA)
  Receive Date: 20220204
  Receipt Date: 20220204
  Transmission Date: 20220423
  Serious: Yes (Other)
  Sender: FDA-Public Use
  Company Number: CA-TEVA-2021-CA-1939318

PATIENT
  Age: 54 Year
  Sex: Male

DRUGS (30)
  1. OMEPRAZOLE [Suspect]
     Active Substance: OMEPRAZOLE
     Indication: Product used for unknown indication
     Route: 065
  2. FORTEO [Suspect]
     Active Substance: TERIPARATIDE
     Indication: Product used for unknown indication
     Dosage: 20 MICROGRAM DAILY;
     Route: 058
  3. FORTEO [Suspect]
     Active Substance: TERIPARATIDE
     Indication: Osteoporosis
     Dosage: 20 MICROGRAM DAILY;
     Route: 058
  4. FORTEO [Suspect]
     Active Substance: TERIPARATIDE
     Dosage: 20 MICROGRAM DAILY;
     Route: 058
  5. FORTEO [Suspect]
     Active Substance: TERIPARATIDE
     Dosage: 20 MICROGRAM DAILY;
     Route: 058
  6. FORTEO [Suspect]
     Active Substance: TERIPARATIDE
     Dosage: 20 MICROGRAM DAILY;
     Route: 058
  7. FORTEO [Suspect]
     Active Substance: TERIPARATIDE
     Dosage: 20 MICROGRAM DAILY;
     Route: 058
  8. FORTEO [Suspect]
     Active Substance: TERIPARATIDE
     Dosage: 20 MILLIGRAM DAILY; SOLUTION SUBCUTANEOUS
     Route: 058
  9. FORTEO [Suspect]
     Active Substance: TERIPARATIDE
     Dosage: 20 MILLIGRAM DAILY; SOLUTION SUBCUTANEOUS
     Route: 058
  10. FORTEO [Suspect]
     Active Substance: TERIPARATIDE
     Dosage: 20 MILLIGRAM DAILY; SOLUTION SUBCUTANEOUS
     Route: 058
  11. FORTEO [Suspect]
     Active Substance: TERIPARATIDE
     Dosage: 20 MILLIGRAM DAILY; SOLUTION SUBCUTANEOUS
     Route: 058
  12. FORTEO [Suspect]
     Active Substance: TERIPARATIDE
     Dosage: 20 MILLIGRAM DAILY; SOLUTION SUBCUTANEOUS
     Route: 058
  13. FORTEO [Suspect]
     Active Substance: TERIPARATIDE
     Dosage: 20 MILLIGRAM DAILY; SOLUTION SUBCUTANEOUS
     Route: 058
  14. AMITRIPTYLINE HYDROCHLORIDE [Concomitant]
     Active Substance: AMITRIPTYLINE HYDROCHLORIDE
     Indication: Product used for unknown indication
     Route: 065
  15. ATIVAN [Concomitant]
     Active Substance: LORAZEPAM
     Indication: Product used for unknown indication
     Route: 065
  16. DESOXIMETASONE [Concomitant]
     Active Substance: DESOXIMETASONE
     Indication: Back pain
     Route: 065
  17. DILAUDID [Concomitant]
     Active Substance: HYDROMORPHONE HYDROCHLORIDE
     Indication: Product used for unknown indication
     Route: 065
  18. DOCUSATE [Concomitant]
     Active Substance: DOCUSATE
     Indication: Product used for unknown indication
     Route: 065
  19. FENTANYL [Concomitant]
     Active Substance: FENTANYL
     Indication: Product used for unknown indication
     Route: 065
  20. FLOVENT [Concomitant]
     Active Substance: FLUTICASONE PROPIONATE
     Indication: Product used for unknown indication
     Route: 065
  21. HYDROMORPHONE HYDROCHLORIDE [Concomitant]
     Active Substance: HYDROMORPHONE HYDROCHLORIDE
     Indication: Product used for unknown indication
     Route: 065
  22. HYDROMORPHONE HYDROCHLORIDE [Concomitant]
     Active Substance: HYDROMORPHONE HYDROCHLORIDE
     Dosage: SOLUTION INTRAMUSCULAR
  23. OXAZEPAM [Concomitant]
     Active Substance: OXAZEPAM
     Indication: Product used for unknown indication
     Route: 065
  24. OXAZEPAM [Concomitant]
     Active Substance: OXAZEPAM
  25. TUMS/07357001/ [Concomitant]
     Indication: Product used for unknown indication
     Route: 065
  26. TUMS/07357001/ [Concomitant]
  27. VENTOLIN [Concomitant]
     Active Substance: ALBUTEROL SULFATE
     Indication: Product used for unknown indication
     Route: 065
  28. VENTOLIN [Concomitant]
     Active Substance: ALBUTEROL SULFATE
     Route: 055
  29. VITAMIN D [Concomitant]
     Active Substance: VITAMIN D NOS
     Indication: Product used for unknown indication
     Route: 065
  30. AMITRIPTYLINE HYDROCHLORIDE\PERPHENAZINE [Concomitant]
     Active Substance: AMITRIPTYLINE HYDROCHLORIDE\PERPHENAZINE

REACTIONS (17)
  - Abdominal pain upper [Not Recovered/Not Resolved]
  - Abdominal pain upper [Not Recovered/Not Resolved]
  - Arthralgia [Not Recovered/Not Resolved]
  - Arthralgia [Not Recovered/Not Resolved]
  - Arthralgia [Not Recovered/Not Resolved]
  - Blood chromogranin A increased [Not Recovered/Not Resolved]
  - Bone pain [Not Recovered/Not Resolved]
  - Dyspepsia [Not Recovered/Not Resolved]
  - Eating disorder [Not Recovered/Not Resolved]
  - Injection site pain [Not Recovered/Not Resolved]
  - Neuralgia [Not Recovered/Not Resolved]
  - Neuroendocrine tumour [Not Recovered/Not Resolved]
  - Pain [Not Recovered/Not Resolved]
  - Psoriasis [Not Recovered/Not Resolved]
  - Sensory loss [Not Recovered/Not Resolved]
  - Weight bearing difficulty [Not Recovered/Not Resolved]
  - Wrist fracture [Not Recovered/Not Resolved]
